FAERS Safety Report 21794930 (Version 1)
Quarter: 2022Q4

REPORT INFORMATION
  Report Type: Spontaneous
  Country: US (occurrence: US)
  Receive Date: 20221229
  Receipt Date: 20221229
  Transmission Date: 20230112
  Serious: Yes (Other)
  Sender: FDA-Public Use
  Company Number: US-AMGEN-USASP2022223676

PATIENT
  Age: 77 Year
  Sex: Male
  Weight: 79 kg

DRUGS (8)
  1. XGEVA [Suspect]
     Active Substance: DENOSUMAB
     Indication: Product used for unknown indication
     Dosage: UNK, Q4WK
     Route: 065
  2. CABOMETYX [Suspect]
     Active Substance: CABOZANTINIB S-MALATE
     Indication: Thyroid cancer
     Dosage: 20 MILLIGRAM
     Route: 048
  3. KAOPECTATE [Concomitant]
     Active Substance: BISMUTH SUBSALICYLATE
  4. VITAMINS [Concomitant]
     Active Substance: VITAMINS
  5. IRON [Concomitant]
     Active Substance: IRON
  6. VITAMIN C [Concomitant]
     Active Substance: ASCORBIC ACID
  7. LANTUS [Concomitant]
     Active Substance: INSULIN GLARGINE
  8. HUMALOG [Concomitant]
     Active Substance: INSULIN LISPRO

REACTIONS (27)
  - Carcinoembryonic antigen increased [Unknown]
  - Bone cancer [Unknown]
  - Skin lesion [Unknown]
  - Balance disorder [Unknown]
  - Chest pain [Unknown]
  - Haemoglobin decreased [Unknown]
  - Malaise [Unknown]
  - Regurgitation [Recovered/Resolved]
  - Haematocrit decreased [Unknown]
  - Eosinophil count increased [Unknown]
  - Blood urea increased [Unknown]
  - Blood chloride increased [Unknown]
  - Protein total decreased [Unknown]
  - Glomerular filtration rate decreased [Unknown]
  - Pruritus [Unknown]
  - Blood glucose decreased [Unknown]
  - Blood creatinine increased [Unknown]
  - Blood albumin decreased [Unknown]
  - Blood calcitonin increased [Unknown]
  - Blood chromogranin A increased [Unknown]
  - Red blood cell count decreased [Unknown]
  - Abdominal pain upper [Unknown]
  - Platelet count decreased [Unknown]
  - Fatigue [Unknown]
  - Nausea [Unknown]
  - Diarrhoea [Recovered/Resolved]
  - Blood calcium decreased [Unknown]

NARRATIVE: CASE EVENT DATE: 20211227
